FAERS Safety Report 8464843-X (Version None)
Quarter: 2012Q2

REPORT INFORMATION
  Report Type: 
  Country: None (occurrence: None)
  Receive Date: 20120626
  Receipt Date: 20120623
  Transmission Date: 20120825
  Serious: Yes (Other)
  Sender: FDA-Public Use
  Company Number: CA-BAYER-2012-062427

PATIENT
  Age: 57 Year
  Sex: Female

DRUGS (5)
  1. VITAMIN B-12 [Concomitant]
  2. LOVAZA [Concomitant]
  3. BETASERON [Suspect]
     Indication: MULTIPLE SCLEROSIS
     Dosage: 0.25 MG, UNK
     Dates: start: 20000101
  4. CLONAZEPAM [Concomitant]
  5. VITAMIN D [Concomitant]

REACTIONS (1)
  - NEEDLE ISSUE [None]
